FAERS Safety Report 8614088-5 (Version None)
Quarter: 2012Q3

REPORT INFORMATION
  Report Type: 
  Country: None (occurrence: None)
  Receive Date: 20120823
  Receipt Date: 20120810
  Transmission Date: 20120928
  Serious: Yes (Hospitalization, Other)
  Sender: FDA-Public Use
  Company Number: PR-009507513-1204USA00035

PATIENT

DRUGS (12)
  1. VITAMIN D [Concomitant]
     Dosage: 800 U, UNK
     Dates: start: 19970101
  2. DAYPRO [Concomitant]
     Indication: HYPERTENSION
  3. LEVOTHYROXINE SODIUM [Concomitant]
     Indication: HYPOTHYROIDISM
  4. FOSAMAX [Suspect]
     Indication: OSTEOPOROSIS
     Dosage: 70 MG, QW
     Route: 048
     Dates: start: 19970701, end: 20101125
  5. CALCIUM (UNSPECIFIED) [Concomitant]
     Dosage: 1200 U, UNK
     Dates: start: 19970101
  6. MK-9359 [Concomitant]
     Indication: ATRIAL FIBRILLATION
     Dates: start: 19910101, end: 20120101
  7. COUMADIN [Concomitant]
     Indication: ATRIAL FIBRILLATION
     Dates: start: 19910101, end: 20120101
  8. SYNTHROID [Concomitant]
     Indication: HYPOTHYROIDISM
  9. FOSAMAX PLUS D [Suspect]
     Indication: OSTEOPOROSIS
     Dosage: 70 MG, UNK
     Route: 048
     Dates: start: 19970701, end: 20100301
  10. TENORMIN [Concomitant]
  11. FOSAMAX [Suspect]
     Dosage: 70 MG, UNK
     Route: 048
     Dates: start: 19970701, end: 20100301
  12. METHOTREXATE [Concomitant]
     Indication: RHEUMATOID ARTHRITIS

REACTIONS (19)
  - SLEEP DISORDER [None]
  - HYSTERECTOMY [None]
  - CHOLECYSTECTOMY [None]
  - DEPRESSION [None]
  - FEAR [None]
  - UPPER RESPIRATORY TRACT INFECTION [None]
  - PAIN IN EXTREMITY [None]
  - ANXIETY [None]
  - BONE DISORDER [None]
  - FOOT FRACTURE [None]
  - MUSCLE SPASMS [None]
  - SYNCOPE [None]
  - FEMUR FRACTURE [None]
  - LOW TURNOVER OSTEOPATHY [None]
  - LIVER FUNCTION TEST ABNORMAL [None]
  - HYPOKINESIA [None]
  - IMPAIRED HEALING [None]
  - OSTEOARTHRITIS [None]
  - ABDOMINAL PAIN LOWER [None]
